FAERS Safety Report 8322611-3 (Version None)
Quarter: 2012Q2

REPORT INFORMATION
  Report Type: 
  Country: None (occurrence: None)
  Receive Date: 20120426
  Receipt Date: 20120411
  Transmission Date: 20120825
  Serious: Yes (Hospitalization, Other)
  Sender: FDA-Public Use
  Company Number: JPI-P-018647

PATIENT
  Age: 33 Year
  Sex: Female
  Weight: 90.7194 kg

DRUGS (16)
  1. FLUTICASONE PROPIONATE [Concomitant]
  2. LIDOCAINE [Concomitant]
  3. DESLORATADINE [Concomitant]
  4. ALPRAZOLAM [Concomitant]
  5. ARMODAFINIL [Concomitant]
  6. XYREM [Suspect]
     Indication: NARCOLEPSY
     Dosage: SEE IMAGE
     Route: 048
     Dates: start: 20110126
  7. XYREM [Suspect]
     Indication: NARCOLEPSY
     Dosage: SEE IMAGE
     Route: 048
     Dates: start: 20100217
  8. ACYCLOVIR [Concomitant]
  9. VENLAFAXINE HCL [Concomitant]
  10. PROMETHAZINE [Concomitant]
  11. DEXTROAMPHETAMINE [Concomitant]
  12. OMEPRAZOLE [Concomitant]
  13. ALBUTEROL [Concomitant]
  14. RIZATRIPTAN BENZOATE [Concomitant]
  15. TOPIRAMATE [Suspect]
     Indication: MIGRAINE PROPHYLAXIS
     Dates: end: 20101201
  16. NORGESTIMATE AND ETHINYL ESTRADIOL [Concomitant]

REACTIONS (13)
  - MATERNAL EXPOSURE DURING PREGNANCY [None]
  - ABORTION SPONTANEOUS [None]
  - AGGRESSION [None]
  - SOMNOLENCE [None]
  - EMOTIONAL DISORDER [None]
  - METABOLIC ACIDOSIS [None]
  - APHASIA [None]
  - AMNESIA [None]
  - FEELING OF DESPAIR [None]
  - IMPAIRED WORK ABILITY [None]
  - COMMUNICATION DISORDER [None]
  - CONVULSION [None]
  - PREGNANCY [None]
